FAERS Safety Report 10218661 (Version 1)
Quarter: 2014Q2

REPORT INFORMATION
  Report Type: Spontaneous
  Country: US (occurrence: US)
  Receive Date: 20140605
  Receipt Date: 20140605
  Transmission Date: 20141212
  Serious: Yes (Other)
  Sender: FDA-Public Use
  Company Number: US-BAYER-2014-077717

PATIENT
  Age: 85 Year
  Sex: Female
  Weight: 48.07 kg

DRUGS (5)
  1. CIPRO [Suspect]
     Indication: MYCOBACTERIUM ABSCESSUS INFECTION
     Dosage: UNK
     Route: 065
     Dates: start: 20131011, end: 201312
  2. SYNTHROID [Interacting]
     Indication: THYROID CANCER
     Dosage: 112 ?G, QD
     Route: 065
     Dates: start: 2012
  3. SYNTHROID [Interacting]
     Indication: HYPOTHYROIDISM
  4. AMIKACIN [Concomitant]
     Indication: MYCOBACTERIUM ABSCESSUS INFECTION
     Dosage: UNK
     Dates: start: 20131011, end: 201312
  5. IMIPENEM [Concomitant]
     Indication: MYCOBACTERIUM ABSCESSUS INFECTION
     Dosage: UNK
     Dates: start: 20131011, end: 201312

REACTIONS (7)
  - Squamous cell carcinoma of skin [None]
  - Burning sensation [None]
  - Drug interaction [None]
  - Burning sensation [None]
  - Burning sensation [None]
  - Pollakiuria [None]
  - Pruritus [None]
